FAERS Safety Report 25171753 (Version 1)
Quarter: 2025Q2

REPORT INFORMATION
  Report Type: Other
  Country: FR (occurrence: FR)
  Receive Date: 20250408
  Receipt Date: 20250408
  Transmission Date: 20250716
  Serious: Yes (Death)
  Sender: ZYDUS PHARM
  Company Number: None

PATIENT

DRUGS (5)
  1. AMLODIPINE [Suspect]
     Active Substance: AMLODIPINE BESYLATE
     Indication: Poisoning deliberate
     Route: 048
     Dates: start: 20250204, end: 20250204
  2. RAMIPRIL [Suspect]
     Active Substance: RAMIPRIL
     Indication: Poisoning deliberate
     Route: 048
     Dates: start: 20250204, end: 20250204
  3. TRIMEPRAZINE [Suspect]
     Active Substance: TRIMEPRAZINE
     Indication: Poisoning deliberate
     Route: 048
     Dates: start: 20250204, end: 20250204
  4. LORAZEPAM [Suspect]
     Active Substance: LORAZEPAM
     Indication: Poisoning deliberate
     Route: 048
     Dates: start: 20250204, end: 20250204
  5. CLOMIPRAMINE [Suspect]
     Active Substance: CLOMIPRAMINE
     Indication: Poisoning deliberate
     Route: 048
     Dates: start: 20250204, end: 20250204

REACTIONS (2)
  - Circulatory collapse [Fatal]
  - Poisoning deliberate [Fatal]

NARRATIVE: CASE EVENT DATE: 20250204
